FAERS Safety Report 9165875 (Version 1)
Quarter: 2013Q1

REPORT INFORMATION
  Report Type: Spontaneous
  Country: US (occurrence: None)
  Receive Date: 20130304
  Receipt Date: 20130304
  Transmission Date: 20140127
  Serious: Yes (Hospitalization)
  Sender: FDA-Public Use
  Company Number: ACO_34463_2013

PATIENT
  Age: 37 Year
  Sex: Female

DRUGS (6)
  1. AMPYRA (DALFAMPRIDINE) TABLET [Suspect]
     Indication: GAIT DISTURBANCE
     Route: 048
     Dates: start: 201001
  2. OXYBUTYNIN (OXYBUTYNIN) [Concomitant]
  3. COPEXONE (GLATIRAMER ACETATE) [Concomitant]
  4. VENLAFAXINE (VENLAFAXINE) [Concomitant]
  5. MODAFINIL (MODAFINIL) [Concomitant]
  6. CRANBERRY (CRANBERRY) CAPSULE [Concomitant]

REACTIONS (4)
  - Uterine haemorrhage [None]
  - Uterine leiomyoma [None]
  - Urinary tract infection [None]
  - Tumour haemorrhage [None]
